FAERS Safety Report 20895509 (Version 2)
Quarter: 2022Q2

REPORT INFORMATION
  Report Type: Other
  Country: US (occurrence: None)
  Receive Date: 20220531
  Receipt Date: 20220610
  Transmission Date: 20220721
  Serious: Yes (Hospitalization, Other)
  Sender: FDA-Public Use
  Company Number: US-ROCHE-3105230

PATIENT
  Sex: Male

DRUGS (1)
  1. COTELLIC [Suspect]
     Active Substance: COBIMETINIB
     Indication: Histiocytosis
     Dosage: TAKE 2 TABLET(S) BY MOUTH DAILY 3 WEEK(S) ON, 1 WEEK(S) OFF
     Route: 048

REACTIONS (2)
  - Volvulus [Unknown]
  - Intestinal obstruction [Unknown]
